FAERS Safety Report 23117070 (Version 1)
Quarter: 2023Q4

REPORT INFORMATION
  Report Type: Spontaneous
  Country: ES (occurrence: ES)
  Receive Date: 20231027
  Receipt Date: 20231027
  Transmission Date: 20240109
  Serious: Yes (Other)
  Sender: FDA-Public Use
  Company Number: ES-002147023-NVSC2022ES281577

PATIENT
  Age: 82 Year
  Sex: Female

DRUGS (4)
  1. ETANERCEPT [Suspect]
     Active Substance: ETANERCEPT
     Indication: Scoliosis
     Dosage: UNK
     Route: 061
  2. ITRACONAZOLE [Suspect]
     Active Substance: ITRACONAZOLE
     Indication: Leishmaniasis
     Dosage: UNK
     Route: 048
  3. LIDOCAINE AND PRILOCAINE [Suspect]
     Active Substance: LIDOCAINE\PRILOCAINE
     Indication: Osteoporosis
     Dosage: AT A DOSE OF 0.6-1 ML ON DAYS 0, 7, AND 21
     Route: 061
  4. PREDNISONE [Concomitant]
     Active Substance: PREDNISONE
     Indication: Rheumatoid arthritis
     Dosage: UNK
     Route: 065

REACTIONS (4)
  - Electrocardiogram ST segment depression [Unknown]
  - Electrocardiogram QT prolonged [Unknown]
  - Electrocardiogram P wave abnormal [Unknown]
  - Drug ineffective for unapproved indication [Unknown]
